FAERS Safety Report 22234319 (Version 1)
Quarter: 2023Q2

REPORT INFORMATION
  Report Type: Spontaneous
  Country: US (occurrence: None)
  Receive Date: 20230418
  Receipt Date: 20230418
  Transmission Date: 20230722
  Serious: No
  Sender: FDA-Public Use
  Company Number: None

PATIENT
  Age: 48 Year
  Sex: Female
  Weight: 58.06 kg

DRUGS (10)
  1. VERZENIO [Suspect]
     Active Substance: ABEMACICLIB
     Indication: Breast cancer female
     Dosage: FREQUENCY : TWICE A DAY;?
     Route: 048
     Dates: start: 202212, end: 20230418
  2. ANASTROZOLE [Concomitant]
     Active Substance: ANASTROZOLE
  3. BUPROPION [Concomitant]
     Active Substance: BUPROPION
  4. CYCLOBENZAPRINE [Concomitant]
     Active Substance: CYCLOBENZAPRINE
  5. FLUCONAZOLE [Concomitant]
     Active Substance: FLUCONAZOLE
  6. IBUPROFEN [Concomitant]
     Active Substance: IBUPROFEN
  7. MOTEGRITY [Concomitant]
     Active Substance: PRUCALOPRIDE SUCCINATE
  8. OXYBUTYNIN [Concomitant]
     Active Substance: OXYBUTYNIN
  9. TEMOVATE [Concomitant]
     Active Substance: CLOBETASOL PROPIONATE
  10. ZOLADEX [Concomitant]
     Active Substance: GOSERELIN ACETATE

REACTIONS (2)
  - Therapy cessation [None]
  - Tumour marker increased [None]
